FAERS Safety Report 22345273 (Version 2)
Quarter: 2023Q2

REPORT INFORMATION
  Report Type: Spontaneous
  Country: US (occurrence: US)
  Receive Date: 20230519
  Receipt Date: 20230614
  Transmission Date: 20230721
  Serious: No
  Sender: FDA-Public Use
  Company Number: US-SA-SAC20230518000432

PATIENT
  Age: 60 Year
  Sex: Female
  Weight: 93.9 kg

DRUGS (1)
  1. DUPIXENT [Suspect]
     Active Substance: DUPILUMAB
     Indication: Neurodermatitis
     Dosage: 300 MG, EVERY 28 WEEKS
     Route: 058
     Dates: start: 20230116

REACTIONS (4)
  - Periorbital swelling [Unknown]
  - Meibomian gland dysfunction [Unknown]
  - Skin irritation [Unknown]
  - Inappropriate schedule of product administration [Unknown]
